FAERS Safety Report 11316075 (Version 2)
Quarter: 2015Q3

REPORT INFORMATION
  Report Type: Report from Study
  Country: AR (occurrence: AR)
  Receive Date: 20150728
  Receipt Date: 20150812
  Transmission Date: 20151125
  Serious: Yes (Other)
  Sender: FDA-Public Use
  Company Number: PHHY2015AR088789

PATIENT
  Sex: Female

DRUGS (1)
  1. DIOVAN D [Suspect]
     Active Substance: HYDROCHLOROTHIAZIDE\VALSARTAN
     Indication: HYPERTENSION
     Dosage: 1 DF (320/25), QD (IN THE EVENING)
     Route: 065

REACTIONS (4)
  - Amnesia [Unknown]
  - Blood pressure increased [Unknown]
  - Memory impairment [Unknown]
  - Nervousness [Unknown]
